FAERS Safety Report 7309675-0 (Version None)
Quarter: 2011Q1

REPORT INFORMATION
  Report Type: 
  Country: None (occurrence: None)
  Receive Date: 20110224
  Receipt Date: 20110214
  Transmission Date: 20110831
  Serious: Yes (Hospitalization)
  Sender: FDA-Public Use
  Company Number: US-BIOGENIDEC-2011BI004363

PATIENT
  Age: 66 Year
  Sex: Female
  Weight: 78 kg

DRUGS (1)
  1. TYSABRI [Suspect]
     Indication: MULTIPLE SCLEROSIS
     Route: 042
     Dates: start: 20060911, end: 20101212

REACTIONS (4)
  - HEPATIC FUNCTION ABNORMAL [None]
  - MUSCLE TIGHTNESS [None]
  - MULTIPLE SCLEROSIS RELAPSE [None]
  - OBSTRUCTION GASTRIC [None]
